FAERS Safety Report 5119425-4 (Version None)
Quarter: 2006Q3

REPORT INFORMATION
  Report Type: 
  Country: None (occurrence: None)
  Receive Date: 20060928
  Receipt Date: 20060915
  Transmission Date: 20061208
  Serious: Yes (Other)
  Sender: FDA-Public Use
  Company Number: 05-000724

PATIENT
  Age: 27 Year
  Sex: Female
  Weight: 59 kg

DRUGS (4)
  1. ESTROSTEP FE [Suspect]
     Indication: PREMENSTRUAL SYNDROME
     Dosage: 20/30/35 1000 UG, QAM, ORAL
     Route: 048
     Dates: start: 20030301
  2. DORYX [Concomitant]
  3. ADVAIR (SALMETEROL XINAFOATE, FLUTICASONE PROPIONATE) [Concomitant]
  4. EVENING PRIMROSE OIL (EVENING PRIMROSE OIL) [Concomitant]

REACTIONS (7)
  - AMENORRHOEA [None]
  - BLOOD PROLACTIN INCREASED [None]
  - BREAST CYST [None]
  - BREAST FIBROSIS [None]
  - BREAST PAIN [None]
  - DRUG DOSE OMISSION [None]
  - FIBROADENOMA OF BREAST [None]
